FAERS Safety Report 13062479 (Version 2)
Quarter: 2017Q2

REPORT INFORMATION
  Report Type: Spontaneous
  Country: US (occurrence: US)
  Receive Date: 20161226
  Receipt Date: 20170525
  Transmission Date: 20170830
  Serious: No
  Sender: FDA-Public Use
  Company Number: US-ELI_LILLY_AND_COMPANY-US201612006965

PATIENT
  Age: 74 Year
  Sex: Female

DRUGS (6)
  1. DULAGLUTIDE. [Suspect]
     Active Substance: DULAGLUTIDE
     Indication: TYPE 2 DIABETES MELLITUS
     Dosage: 0.75 MG, WEEKLY (1/W)
     Route: 058
     Dates: start: 20161213
  2. LEVOTHYROXINE. [Concomitant]
     Active Substance: LEVOTHYROXINE
  3. DULAGLUTIDE. [Suspect]
     Active Substance: DULAGLUTIDE
     Dosage: 0.75 MG, WEEKLY (1/W)
     Route: 058
  4. JANUVIA [Concomitant]
     Active Substance: SITAGLIPTIN PHOSPHATE
  5. LANTUS [Concomitant]
     Active Substance: INSULIN GLARGINE
  6. ATENOLOL. [Concomitant]
     Active Substance: ATENOLOL

REACTIONS (9)
  - Gastrointestinal sounds abnormal [Not Recovered/Not Resolved]
  - Diarrhoea [Recovering/Resolving]
  - Pain [Not Recovered/Not Resolved]
  - Nausea [Recovered/Resolved]
  - Headache [Not Recovered/Not Resolved]
  - Dyspepsia [Recovering/Resolving]
  - Eructation [Not Recovered/Not Resolved]
  - Influenza like illness [Not Recovered/Not Resolved]
  - Flatulence [Not Recovered/Not Resolved]

NARRATIVE: CASE EVENT DATE: 20161213
